FAERS Safety Report 7282854-7 (Version None)
Quarter: 2011Q1

REPORT INFORMATION
  Report Type: 
  Country: None (occurrence: None)
  Receive Date: 20110209
  Receipt Date: 20110131
  Transmission Date: 20110831
  Serious: Yes (Hospitalization)
  Sender: FDA-Public Use
  Company Number: SE-JNJFOC-20110200183

PATIENT
  Age: 56 Year
  Sex: Female

DRUGS (4)
  1. FOLACIN [Concomitant]
  2. REMICADE [Suspect]
     Indication: PSORIATIC ARTHROPATHY
     Route: 042
  3. VOLTAREN [Concomitant]
  4. METHOTREXATE [Concomitant]

REACTIONS (2)
  - TRANSAMINASES INCREASED [None]
  - CHOLECYSTITIS [None]
